FAERS Safety Report 26047132 (Version 1)
Quarter: 2025Q4

REPORT INFORMATION
  Report Type: Spontaneous
  Country: GB (occurrence: GB)
  Receive Date: 20251114
  Receipt Date: 20251114
  Transmission Date: 20260118
  Serious: Yes (Other)
  Sender: OTSUKA
  Company Number: GB-MMM-Otsuka-BOLNZJM7

PATIENT

DRUGS (3)
  1. ABILIFY [Suspect]
     Active Substance: ARIPIPRAZOLE
     Indication: Product used for unknown indication
     Dosage: 3.5 MG (LIQUID DOSE)
     Route: 065
  2. LITHIUM [Concomitant]
     Active Substance: LITHIUM
     Indication: Product used for unknown indication
     Dosage: 600 MG
     Route: 065
  3. METFORMIN [Concomitant]
     Active Substance: METFORMIN HYDROCHLORIDE
     Indication: Product used for unknown indication
     Dosage: 1000 MG
     Route: 065

REACTIONS (1)
  - Ventricular tachycardia [Unknown]
